FAERS Safety Report 5425830-9 (Version None)
Quarter: 2007Q3

REPORT INFORMATION
  Report Type: 
  Country: None (occurrence: None)
  Receive Date: 20070827
  Receipt Date: 20070820
  Transmission Date: 20080115
  Serious: Yes (Hospitalization)
  Sender: FDA-Public Use
  Company Number: PHRM2007FR02042

PATIENT
  Age: 85 Year
  Sex: Female

DRUGS (6)
  1. DIGOXIN [Concomitant]
     Dosage: 3/4 TAB/DAY
     Route: 048
  2. HEMIGOXINE [Concomitant]
     Dosage: 1 DF, QD
  3. STILNOX [Concomitant]
  4. ARICEPT [Suspect]
     Dosage: 10 MG, QD
     Route: 048
     Dates: start: 20030101
  5. KARDEGIC [Suspect]
     Dosage: 75 MG, QD
     Route: 048
     Dates: start: 20030101
  6. COTAREG [Suspect]
     Indication: HYPERTENSION
     Dosage: 1 DF, QD
     Route: 048
     Dates: start: 20030101

REACTIONS (7)
  - BLOOD OSMOLARITY INCREASED [None]
  - BLOOD UREA INCREASED [None]
  - DEHYDRATION [None]
  - DEPRESSED LEVEL OF CONSCIOUSNESS [None]
  - DISORIENTATION [None]
  - MALNUTRITION [None]
  - TONGUE DRY [None]
